FAERS Safety Report 14289220 (Version 1)
Quarter: 2017Q4

REPORT INFORMATION
  Report Type: Spontaneous
  Country: US (occurrence: US)
  Receive Date: 20171214
  Receipt Date: 20171214
  Transmission Date: 20180321
  Serious: No
  Sender: FDA-Public Use
  Company Number: US-BAXTER-2017BAX041847

PATIENT
  Sex: Female

DRUGS (2)
  1. BUPIVACAINE HYDROCHLORIDE IN 8.25% DEXTROSE INJECTION USP [Suspect]
     Active Substance: BUPIVACAINE HYDROCHLORIDE
     Indication: ANAESTHESIA PROCEDURE
     Route: 065
  2. BUPIVACAINE HYDROCHLORIDE IN 8.25% DEXTROSE INJECTION USP [Suspect]
     Active Substance: BUPIVACAINE HYDROCHLORIDE
     Route: 065

REACTIONS (1)
  - Drug ineffective [Recovered/Resolved]
